FAERS Safety Report 6142693 (Version 15)
Quarter: 2013Q3

REPORT INFORMATION
  Report Type: Spontaneous
  Country: US (occurrence: US)
  Receive Date: 20061006
  Receipt Date: 20130812
  Transmission Date: 20140515
  Serious: Yes (Death, Life-Threatening, Hospitalization, Other)
  Sender: FDA-Public Use
  Company Number: PHEH2006US12162

PATIENT
  Age: 62 Year
  Sex: Female
  Weight: 65.31 kg

DRUGS (56)
  1. AREDIA [Suspect]
     Indication: BONE LOSS
     Dosage: 90 MG, QMO
     Route: 042
  2. ZOMETA [Suspect]
     Route: 042
  3. DECADRON                                /CAN/ [Concomitant]
  4. AVANDIA [Concomitant]
  5. CIPRO ^MILES^ [Concomitant]
  6. CLINDAMYCIN [Concomitant]
  7. LORAZEPAM [Concomitant]
  8. VANCOMYCIN [Concomitant]
  9. LEVAQUIN [Concomitant]
  10. PROCRIT                            /00909301/ [Concomitant]
  11. METRONIDAZOLE [Concomitant]
  12. QUININE SULFATE [Concomitant]
  13. OXYCONTIN [Concomitant]
  14. ATIVAN [Concomitant]
  15. OXYCODONE [Concomitant]
  16. VELCADE [Concomitant]
  17. K-DUR [Concomitant]
  18. LASIX [Concomitant]
  19. SYNTHROID [Concomitant]
  20. TRAZODONE [Concomitant]
  21. PIRAMIDON [Concomitant]
  22. VALIUM [Concomitant]
  23. AMBIEN [Concomitant]
  24. PERCOCET [Concomitant]
  25. NEURONTIN [Concomitant]
  26. DEFLAZACORT [Concomitant]
  27. FLAGYL [Concomitant]
  28. DYAZIDE [Concomitant]
  29. PREDNISONE [Concomitant]
  30. PERIDEX [Concomitant]
  31. ZOFRAN [Concomitant]
  32. HUMALOG [Concomitant]
  33. LANTUS [Concomitant]
  34. FUROSEMIDE [Concomitant]
  35. INSULIN [Concomitant]
  36. HYPOTEARS                               /SCH/ [Concomitant]
  37. VIROPTIC [Concomitant]
  38. VOLTAREN                           /00372303/ [Concomitant]
  39. CYCLOGYL [Concomitant]
  40. HOMATROPINE EYE DROPS [Concomitant]
  41. SULFACETAMIDE [Concomitant]
  42. REFRESH [Concomitant]
  43. MICRONASE [Concomitant]
  44. DEPOTHAL [Concomitant]
  45. POTASSIUM [Concomitant]
  46. FOLIC ACID [Concomitant]
  47. ASPIRIN ^BAYER^ [Concomitant]
  48. COLACE [Concomitant]
  49. ECOTRIN [Concomitant]
  50. GLYBURIDE [Concomitant]
  51. BENADRYL [Concomitant]
  52. TEQUIN [Concomitant]
  53. TRICOR [Concomitant]
  54. FERROUS SULFATE [Concomitant]
  55. CELEBREX [Concomitant]
  56. NORVASC                                 /DEN/ [Concomitant]

REACTIONS (72)
  - Death [Fatal]
  - Gun shot wound [Unknown]
  - Cellulitis [Unknown]
  - Osteonecrosis of jaw [Unknown]
  - Injury [Unknown]
  - Pain [Unknown]
  - Anxiety [Unknown]
  - Physical disability [Unknown]
  - Osteomyelitis [Unknown]
  - Haemoglobin decreased [Unknown]
  - Haematocrit decreased [Unknown]
  - Gingival erosion [Unknown]
  - Cataract [Unknown]
  - Impaired healing [Unknown]
  - Wound dehiscence [Unknown]
  - Bone disorder [Unknown]
  - Excessive granulation tissue [Unknown]
  - Osteonecrosis [Unknown]
  - Oral cavity fistula [Unknown]
  - Swelling face [Recovering/Resolving]
  - Purpura [Unknown]
  - Thrombocytopenia [Unknown]
  - Hepatic cirrhosis [Unknown]
  - Hepatomegaly [Unknown]
  - Colitis ulcerative [Unknown]
  - Anaemia [Unknown]
  - Senile osteoporosis [Unknown]
  - Osteochondrosis [Unknown]
  - Neuropathy peripheral [Unknown]
  - Cerebrovascular accident [Unknown]
  - Renal impairment [Unknown]
  - Rotator cuff syndrome [Unknown]
  - Catheterisation cardiac [Unknown]
  - Hypothyroidism [Unknown]
  - Hyperglycaemia [Unknown]
  - Petechiae [Unknown]
  - Portal hypertension [Unknown]
  - Ischaemia [Unknown]
  - Lumbar spinal stenosis [Unknown]
  - Fall [Unknown]
  - Oral candidiasis [Unknown]
  - Pancytopenia [Unknown]
  - Splenomegaly [Unknown]
  - Cholelithiasis [Unknown]
  - Gallbladder enlargement [Unknown]
  - Vitamin K deficiency [Unknown]
  - Herpes zoster [Unknown]
  - Scoliosis [Unknown]
  - Graft versus host disease [Unknown]
  - Superinfection bacterial [Unknown]
  - Eye infection viral [Unknown]
  - Uveitis [Unknown]
  - Keratitis [Unknown]
  - Iritis [Unknown]
  - Onychomycosis [Unknown]
  - Peripheral vascular disorder [Unknown]
  - Depressed mood [Unknown]
  - Pain in extremity [Unknown]
  - Arthralgia [Unknown]
  - Joint swelling [Unknown]
  - Breast mass [Unknown]
  - Arteriosclerosis [Unknown]
  - Chest pain [Unknown]
  - Syncope [Unknown]
  - Nephropathy [Unknown]
  - Gastrooesophageal reflux disease [Unknown]
  - Fistula [Unknown]
  - Parakeratosis [Unknown]
  - Ulcer [Unknown]
  - Soft tissue inflammation [Unknown]
  - Road traffic accident [Unknown]
  - Haematoma [Unknown]
